FAERS Safety Report 5653037-9 (Version None)
Quarter: 2008Q1

REPORT INFORMATION
  Report Type: 
  Country: None (occurrence: None)
  Receive Date: 20080306
  Receipt Date: 20080228
  Transmission Date: 20080703
  Serious: Yes (Hospitalization, Disabling, Other)
  Sender: FDA-Public Use
  Company Number: PHFR2008GB00717

PATIENT
  Age: 65 Year
  Sex: Female
  Weight: 60 kg

DRUGS (6)
  1. ANAGRELIDE HCL [Concomitant]
     Indication: MYELOPROLIFERATIVE DISORDER
     Dosage: 4 MG
     Route: 048
  2. HYDROXYCARBAMIDE [Concomitant]
     Indication: MYELOPROLIFERATIVE DISORDER
     Dosage: 0.1 G
     Route: 048
  3. ASPIRIN [Concomitant]
     Indication: MYELOPROLIFERATIVE DISORDER
     Dosage: 75 MG
     Route: 048
  4. LANSOPRAZOLE [Concomitant]
     Indication: MYELOPROLIFERATIVE DISORDER
     Dosage: 30 MG
     Route: 048
  5. EXJADE [Suspect]
     Indication: IRON OVERLOAD
     Dosage: 1125 MG
     Route: 048
     Dates: start: 20071210, end: 20071228
  6. EXJADE [Suspect]
     Dosage: 1125 MG
     Route: 048
     Dates: start: 20080111, end: 20080118

REACTIONS (7)
  - ABDOMINAL PAIN [None]
  - ARTHRALGIA [None]
  - BLOOD ALBUMIN DECREASED [None]
  - BLOOD ALKALINE PHOSPHATASE INCREASED [None]
  - DIARRHOEA [None]
  - PAIN [None]
  - VOMITING [None]
